FAERS Safety Report 9002056 (Version 1)
Quarter: 2013Q1

REPORT INFORMATION
  Report Type: Spontaneous
  Country: CH (occurrence: CH)
  Receive Date: 20130107
  Receipt Date: 20130107
  Transmission Date: 20140127
  Serious: Yes (Hospitalization)
  Sender: FDA-Public Use
  Company Number: CH-ASTRAZENECA-2012SE96387

PATIENT
  Age: 17 Year
  Sex: Male

DRUGS (9)
  1. SEROQUEL [Suspect]
     Indication: MENTAL DISORDER
     Route: 048
     Dates: start: 2011
  2. RIMACTANE [Interacting]
     Indication: WOUND INFECTION
     Route: 048
     Dates: start: 20121123
  3. NOZINAN [Interacting]
     Indication: MENTAL DISORDER
     Route: 048
     Dates: start: 2011
  4. KEFZOL [Suspect]
     Indication: WOUND INFECTION
     Route: 041
     Dates: start: 20121119, end: 20121123
  5. FLOXAPEN [Suspect]
     Indication: WOUND INFECTION
     Route: 041
     Dates: start: 20121123
  6. FLOXAPEN [Suspect]
     Indication: WOUND INFECTION
     Route: 041
     Dates: start: 201211
  7. FLUOXETIN [Concomitant]
  8. MINRIN [Concomitant]
  9. INFLORAN [Concomitant]
     Route: 048

REACTIONS (3)
  - Drug interaction [Unknown]
  - Purpura [Recovering/Resolving]
  - Petechiae [Recovered/Resolved]
